FAERS Safety Report 6416623-4 (Version None)
Quarter: 2009Q4

REPORT INFORMATION
  Report Type: 
  Country: None (occurrence: None)
  Receive Date: 20091023
  Receipt Date: 20091008
  Transmission Date: 20100525
  Serious: Yes (Other)
  Sender: FDA-Public Use
  Company Number: DSM-2009-01181

PATIENT
  Age: 56 Year
  Sex: Female

DRUGS (1)
  1. OMESAR (OLMESARTAN MEDOXOMIL) (20 MILLIGRAM) (OLMESARTAN MEDOXOMIL) [Suspect]
     Indication: HYPERTENSION
     Dosage: ORAL
     Route: 048
     Dates: start: 20080101

REACTIONS (4)
  - BIOPSY BONE MARROW ABNORMAL [None]
  - INCREASED TENDENCY TO BRUISE [None]
  - LYMPHOMA [None]
  - THROMBOCYTOPENIA [None]
